FAERS Safety Report 23718818 (Version 1)
Quarter: 2024Q2

REPORT INFORMATION
  Report Type: Spontaneous
  Country: US (occurrence: US)
  Receive Date: 20240408
  Receipt Date: 20240408
  Transmission Date: 20240716
  Serious: Yes (Hospitalization, Other)
  Sender: FDA-Public Use
  Company Number: US-009507513-2404USA001304

PATIENT
  Age: 68 Year
  Sex: Male

DRUGS (2)
  1. CUBICIN [Suspect]
     Active Substance: DAPTOMYCIN
     Indication: Staphylococcal infection
     Dosage: UNK
  2. CUBICIN [Suspect]
     Active Substance: DAPTOMYCIN
     Indication: Device related infection
     Dosage: 402 MG/DAY FOR 67 KG BODY WEIGHT VIA PERIPHERALLY INSERTED CENTRAL CATHETER
     Route: 042

REACTIONS (2)
  - Eosinophilic pneumonia [Recovering/Resolving]
  - Product use in unapproved indication [Unknown]
